FAERS Safety Report 6850828-3 (Version None)
Quarter: 2010Q3

REPORT INFORMATION
  Report Type: 
  Country: None (occurrence: None)
  Receive Date: 20100716
  Receipt Date: 20071022
  Transmission Date: 20110219
  Serious: No
  Sender: FDA-Public Use
  Company Number: US-PFIZER INC-2007089840

PATIENT
  Sex: Male
  Weight: 118.18 kg

DRUGS (6)
  1. CHANTIX [Suspect]
     Indication: SMOKING CESSATION THERAPY
     Dates: start: 20071020
  2. LISINOPRIL [Concomitant]
     Indication: BLOOD PRESSURE ABNORMAL
  3. LOVASTATIN [Concomitant]
  4. LANTUS [Concomitant]
  5. HUMALOG [Concomitant]
  6. DIAZEPAM [Concomitant]

REACTIONS (1)
  - ABNORMAL DREAMS [None]
